FAERS Safety Report 5419427-4 (Version None)
Quarter: 2007Q3

REPORT INFORMATION
  Report Type: 
  Country: None (occurrence: None)
  Receive Date: 20070817
  Receipt Date: 20070817
  Transmission Date: 20080115
  Serious: Yes (Death, Hospitalization, Other)
  Sender: FDA-Public Use
  Company Number: None

PATIENT
  Age: 72 Year
  Sex: Female

DRUGS (15)
  1. ARIXTRA [Suspect]
     Indication: ATRIAL THROMBOSIS
  2. ALBUTEROL [Concomitant]
  3. ASPIRIN [Concomitant]
  4. QUESTRAN [Concomitant]
  5. PLAVIX [Concomitant]
  6. DIGOXIN [Concomitant]
  7. PROCRIT [Concomitant]
  8. LEXAPRO [Concomitant]
  9. LASIX [Concomitant]
  10. LOPRESSOR [Concomitant]
  11. PREDNISONE TAB [Concomitant]
  12. ACCUPRIL [Concomitant]
  13. ZANTAC 150 [Concomitant]
  14. VANCOMYCIN [Concomitant]
  15. COUMADIN [Concomitant]

REACTIONS (7)
  - ASTERIXIS [None]
  - CARDIAC FAILURE CONGESTIVE [None]
  - COAGULOPATHY [None]
  - DIALYSIS [None]
  - EPISTAXIS [None]
  - HAEMATOCRIT DECREASED [None]
  - RENAL FAILURE [None]
